FAERS Safety Report 20116366 (Version 2)
Quarter: 2022Q1

REPORT INFORMATION
  Report Type: Report from Study
  Country: US (occurrence: None)
  Receive Date: 20211126
  Receipt Date: 20220113
  Transmission Date: 20220424
  Serious: Yes (Other)
  Sender: FDA-Public Use
  Company Number: US-Merck Healthcare KGaA-9281757

PATIENT
  Sex: Female

DRUGS (1)
  1. REBIF [Suspect]
     Active Substance: INTERFERON BETA-1A
     Indication: Brain neoplasm
     Route: 058
     Dates: start: 20170428, end: 20211108

REACTIONS (2)
  - Brain neoplasm [Unknown]
  - Product prescribing error [Unknown]
